FAERS Safety Report 7733776-6 (Version None)
Quarter: 2011Q3

REPORT INFORMATION
  Report Type: 
  Country: None (occurrence: None)
  Receive Date: 20110907
  Receipt Date: 20110905
  Transmission Date: 20111222
  Serious: Yes (Other)
  Sender: FDA-Public Use
  Company Number: JP-PFIZER INC-2011206430

PATIENT
  Age: 91 Year
  Sex: Male

DRUGS (4)
  1. ATARAX [Suspect]
     Dosage: 75 MG, DAILY
     Dates: start: 20110701
  2. ATARAX [Suspect]
     Dosage: 4 DF, DAILY
     Dates: start: 20110601
  3. RISPERDAL [Concomitant]
     Dosage: UNK
  4. ATARAX [Suspect]
     Dosage: 25 MG, DAILY

REACTIONS (5)
  - INSOMNIA [None]
  - DEMENTIA [None]
  - SKIN CANCER [None]
  - SOMNOLENCE [None]
  - ERYTHEMA [None]
